FAERS Safety Report 6641008 (Version 4)
Quarter: 2012Q4

REPORT INFORMATION
  Report Type: Report from Study
  Country: FR (occurrence: FR)
  Receive Date: 20080515
  Receipt Date: 20121220
  Transmission Date: 20130627
  Serious: Yes (Hospitalization)
  Sender: FDA-Public Use
  Company Number: FR-GILEAD-2008-0016360

PATIENT
  Age: 61 Year
  Sex: Male

DRUGS (11)
  1. EMTRICITABINE/TENOFOVIR DISOPROXIL FUMARATE [Suspect]
     Indication: HIV INFECTION
     Dosage: 1 DF, QD
     Route: 048
     Dates: start: 20080430
  2. KALETRA [Suspect]
     Indication: HIV INFECTION
     Dosage: 4 DF, QD
     Route: 048
     Dates: start: 20080430
  3. FUZEON [Suspect]
     Indication: HIV INFECTION
     Dosage: 180 mg, QD
     Route: 058
     Dates: start: 20080430
  4. ROVALCYTE [Suspect]
     Indication: CYTOMEGALOVIRUS INFECTION
     Dosage: 1800 mg, QD
     Route: 048
     Dates: start: 20080426, end: 20080505
  5. ROVALCYTE [Suspect]
     Dosage: UNK
     Route: 048
  6. BACTRIM [Suspect]
     Indication: PNEUMOCYSTIS JIROVECI PNEUMONIA
     Dosage: 1 DF, QD
     Route: 048
     Dates: start: 20080325
  7. AZADOSE [Concomitant]
     Indication: OPPORTUNISTIC INFECTION PROPHYLAXIS
     Dosage: 1200 mg, Q1Wk
     Dates: start: 20080414
  8. VERAPAMIL [Concomitant]
     Dosage: UNK
  9. BROMAZEPAM [Concomitant]
     Dosage: UNK
  10. LOPERAMIDE [Concomitant]
  11. METOCLOPRAMIDE [Concomitant]

REACTIONS (11)
  - Renal tubular disorder [Unknown]
  - General physical health deterioration [Recovered/Resolved]
  - Chest X-ray abnormal [Recovered/Resolved]
  - Pyrexia [Recovered/Resolved]
  - Cough [Recovered/Resolved]
  - Systemic inflammatory response syndrome [Recovered/Resolved]
  - Cytomegalovirus infection [Recovered/Resolved]
  - Vomiting [Recovered/Resolved]
  - Neutropenia [Recovered/Resolved]
  - Diarrhoea [Recovered/Resolved]
  - Asthenia [Recovered/Resolved]
